FAERS Safety Report 5327788-X (Version None)
Quarter: 2007Q1

REPORT INFORMATION
  Report Type: 
  Country: None (occurrence: None)
  Receive Date: 20070226
  Receipt Date: 20061120
  Transmission Date: 20070707
  Serious: Yes (Other)
  Sender: FDA-Public Use
  Company Number: WAES 0611USA06374

PATIENT

DRUGS (1)
  1. VYTORIN [Suspect]
     Indication: HYPERCHOLESTEROLAEMIA
     Dosage: 10-20 MG/DAILY/PO
     Route: 048
     Dates: start: 20061001, end: 20061001

REACTIONS (1)
  - RHABDOMYOLYSIS [None]
